FAERS Safety Report 8189765-3 (Version None)
Quarter: 2012Q1

REPORT INFORMATION
  Report Type: 
  Country: None (occurrence: None)
  Receive Date: 20120307
  Receipt Date: 20111108
  Transmission Date: 20120608
  Serious: No
  Sender: FDA-Public Use
  Company Number: US-GLAXOSMITHKLINE-A0708709A

PATIENT
  Age: 64 Year
  Sex: Male

DRUGS (15)
  1. FLOMAX [Concomitant]
  2. ALLOPURINOL [Concomitant]
  3. REQUIP [Suspect]
     Indication: RESTLESS LEGS SYNDROME
     Route: 048
     Dates: start: 20060101
  4. VITAMIN B3 [Concomitant]
  5. PLAQUENIL [Concomitant]
  6. SYNTHROID [Concomitant]
  7. FISH OIL [Concomitant]
  8. NEPHPLEX RX [Concomitant]
  9. AVODART [Concomitant]
  10. ASPIRIN [Concomitant]
  11. LASIX [Concomitant]
  12. KLONOPIN [Concomitant]
  13. ROPINIROLE [Suspect]
     Indication: RESTLESS LEGS SYNDROME
     Dates: start: 20070101, end: 20091115
  14. LABETALOL HCL [Concomitant]
  15. SINEMET [Concomitant]

REACTIONS (2)
  - ARTHRALGIA [None]
  - THERAPEUTIC RESPONSE UNEXPECTED [None]
